FAERS Safety Report 6695807 (Version 2)
Quarter: 2020Q3

REPORT INFORMATION
  Report Type: Report from Study
  Country: US (occurrence: US)
  Receive Date: 20080710
  Receipt Date: 20080717
  Transmission Date: 20201104
  Serious: Yes (Hospitalization)
  Sender: FDA-Public Use
  Company Number: US-JNJFOC-20080205831

PATIENT
  Age: 42 Year
  Sex: Female
  Weight: 60 kg

DRUGS (14)
  1. DARAPRIM [Concomitant]
     Active Substance: PYRIMETHAMINE
     Indication: ACQUIRED IMMUNODEFICIENCY SYNDROME
     Route: 048
  2. NORVIR [Concomitant]
     Active Substance: RITONAVIR
     Indication: HIV INFECTION
     Route: 048
  3. IMODIUM [Concomitant]
     Active Substance: LOPERAMIDE HYDROCHLORIDE
     Indication: DIARRHOEA
     Dosage: DOSE REPORTED AS TAKE 1 CAPSULE EVERY SIX HOURS AS NEEDED
     Route: 048
  4. ETRAVIRINE [Suspect]
     Active Substance: ETRAVIRINE
     Route: 048
  5. PREZISTA [Concomitant]
     Active Substance: DARUNAVIR ETHANOLATE
     Indication: HIV INFECTION
     Route: 048
  6. EPZICOM [Concomitant]
     Active Substance: ABACAVIR SULFATE\LAMIVUDINE
     Indication: HIV INFECTION
     Dosage: 600?300MG
     Route: 048
  7. LEUCOVORIN. [Concomitant]
     Active Substance: LEUCOVORIN
     Indication: ACQUIRED IMMUNODEFICIENCY SYNDROME
     Route: 048
  8. DIFLUCAN [Concomitant]
     Active Substance: FLUCONAZOLE
     Indication: VULVOVAGINAL CANDIDIASIS
     Route: 048
  9. LEVAQUIN [Suspect]
     Active Substance: LEVOFLOXACIN
     Indication: UPPER RESPIRATORY TRACT INFECTION
     Route: 048
  10. MARAVIROC [Concomitant]
     Indication: HIV INFECTION
     Route: 048
  11. RALTEGRAVIR [Concomitant]
     Indication: HIV INFECTION
     Route: 048
  12. CLEOCIN [Concomitant]
     Active Substance: CLINDAMYCIN PHOSPHATE
     Indication: ACQUIRED IMMUNODEFICIENCY SYNDROME
     Route: 048
  13. TAMOXIFEN CITRATE. [Concomitant]
     Active Substance: TAMOXIFEN CITRATE
     Indication: BREAST CANCER
     Route: 048
  14. ETRAVIRINE [Suspect]
     Active Substance: ETRAVIRINE
     Indication: HIV INFECTION
     Route: 048

REACTIONS (5)
  - Productive cough [Recovered/Resolved]
  - Rash [Recovered/Resolved]
  - Pyrexia [Recovered/Resolved]
  - Vomiting [Recovered/Resolved]
  - Nausea [Recovered/Resolved]

NARRATIVE: CASE EVENT DATE: 20080202
